FAERS Safety Report 7037508-9 (Version None)
Quarter: 2010Q4

REPORT INFORMATION
  Report Type: 
  Country: None (occurrence: None)
  Receive Date: 20101011
  Receipt Date: 20100831
  Transmission Date: 20110411
  Serious: Yes (Death, Life-Threatening)
  Sender: FDA-Public Use
  Company Number: B0673805A

PATIENT
  Sex: Female

DRUGS (6)
  1. ARIXTRA [Suspect]
     Indication: ACUTE CORONARY SYNDROME
     Dosage: 2.5ML PER DAY
     Route: 065
     Dates: start: 20100604, end: 20100605
  2. CLOPIDOGREL [Concomitant]
     Indication: ACUTE CORONARY SYNDROME
     Dosage: 75MG PER DAY
     Dates: start: 20100604, end: 20100606
  3. ACETYLSALICYLIC ACID SRT [Concomitant]
     Indication: ACUTE CORONARY SYNDROME
     Dosage: 100MG PER DAY
     Dates: start: 20100604, end: 20100606
  4. ATORVASTATIN [Concomitant]
     Dosage: 20MG PER DAY
     Dates: start: 20100604
  5. METOPROLOL TARTRATE [Concomitant]
     Dosage: 50MG PER DAY
     Dates: start: 20100604
  6. ISOSORBIDE MONONITRATE [Concomitant]
     Dosage: 40MG PER DAY
     Dates: start: 20100604

REACTIONS (7)
  - APHASIA [None]
  - ATRIAL FIBRILLATION [None]
  - BRAIN OEDEMA [None]
  - HAEMORRHAGIC STROKE [None]
  - HEMIPLEGIA [None]
  - POSTINFARCTION ANGINA [None]
  - PULMONARY OEDEMA [None]
